FAERS Safety Report 17760343 (Version 1)
Quarter: 2020Q2

REPORT INFORMATION
  Report Type: Spontaneous
  Country: NL (occurrence: NL)
  Receive Date: 20200508
  Receipt Date: 20200508
  Transmission Date: 20200714
  Serious: Yes (Other)
  Sender: FDA-Public Use
  Company Number: NL-TEVA-2020-NL-1231941

PATIENT
  Sex: Male
  Weight: 83 kg

DRUGS (3)
  1. NIFEDIPINE. [Suspect]
     Active Substance: NIFEDIPINE
     Indication: VASODILATATION
     Dosage: 30 MILLIGRAM DAILY;
     Dates: start: 20200323, end: 20200404
  2. CARBASALAATCALCIUM [Concomitant]
     Active Substance: CARBASPIRIN CALCIUM
     Dosage: 100 MG, THERAPY START DATE AND END DATE: ASKED BUT UNKNOWN
  3. BUMETANIDE. [Concomitant]
     Active Substance: BUMETANIDE
     Dosage: 1 MG, THERAPY START DATE AND END DATE: ASKED BUT UNKNOWN

REACTIONS (5)
  - Dizziness [Unknown]
  - Erectile dysfunction [Unknown]
  - Headache [Not Recovered/Not Resolved]
  - Nausea [Unknown]
  - Rhinorrhoea [Unknown]
